FAERS Safety Report 25087769 (Version 1)
Quarter: 2025Q1

REPORT INFORMATION
  Report Type: Spontaneous
  Country: US (occurrence: US)
  Receive Date: 20250318
  Receipt Date: 20250318
  Transmission Date: 20250409
  Serious: No
  Sender: TEVA
  Company Number: US-TEVA-VS-3307598

PATIENT
  Sex: Female

DRUGS (1)
  1. AUSTEDO [Suspect]
     Active Substance: DEUTETRABENAZINE
     Indication: Tardive dyskinesia
     Route: 065

REACTIONS (7)
  - Nervous system disorder [Unknown]
  - Dyspnoea [Unknown]
  - Gait disturbance [Unknown]
  - Speech disorder [Unknown]
  - Agitation [Unknown]
  - Abdominal pain upper [Unknown]
  - Drug ineffective [Unknown]
